FAERS Safety Report 20344053 (Version 1)
Quarter: 2022Q1

REPORT INFORMATION
  Report Type: Report from Study
  Country: US (occurrence: US)
  Receive Date: 20220118
  Receipt Date: 20220118
  Transmission Date: 20220423
  Serious: Yes (Hospitalization, Other)
  Sender: FDA-Public Use
  Company Number: US-ABBVIE-21K-163-3985055-00

PATIENT
  Sex: Female

DRUGS (2)
  1. HUMIRA [Suspect]
     Active Substance: ADALIMUMAB
     Indication: Psoriatic arthropathy
     Route: 058
     Dates: start: 20210521
  2. HUMIRA [Suspect]
     Active Substance: ADALIMUMAB
     Indication: Psoriasis

REACTIONS (22)
  - Cerebrospinal fluid leakage [Unknown]
  - Medical procedure [Unknown]
  - Fatigue [Recovered/Resolved]
  - Grip strength decreased [Recovered/Resolved]
  - Joint range of motion decreased [Recovered/Resolved]
  - Loss of personal independence in daily activities [Recovered/Resolved]
  - Gait disturbance [Unknown]
  - Mobility decreased [Recovered/Resolved]
  - Psoriasis [Not Recovered/Not Resolved]
  - Ear pain [Recovering/Resolving]
  - Hypersensitivity [Unknown]
  - Pain in extremity [Not Recovered/Not Resolved]
  - Neck pain [Unknown]
  - Pain [Not Recovered/Not Resolved]
  - Oropharyngeal pain [Recovering/Resolving]
  - Pharyngeal erythema [Recovering/Resolving]
  - Exposure to SARS-CoV-2 [Unknown]
  - Procedural headache [Unknown]
  - Loss of personal independence in daily activities [Unknown]
  - General physical health deterioration [Unknown]
  - Arthralgia [Unknown]
  - Headache [Unknown]

NARRATIVE: CASE EVENT DATE: 20210101
